FAERS Safety Report 4898490-3 (Version None)
Quarter: 2006Q1

REPORT INFORMATION
  Report Type: 
  Country: None (occurrence: None)
  Receive Date: 20060130
  Receipt Date: 20060113
  Transmission Date: 20060701
  Serious: Yes (Hospitalization)
  Sender: FDA-Public Use
  Company Number: S06-DEN-00072-01

PATIENT
  Age: 77 Year
  Sex: Female
  Weight: 53 kg

DRUGS (5)
  1. AKARIN (CITALOPRAM) [Suspect]
     Indication: DEPRESSION
     Dosage: 30 MG QD PO
     Route: 048
     Dates: start: 20010101
  2. MARCUMAR [Concomitant]
  3. DIMITONE (CARVEDILOL) [Concomitant]
  4. FUROSEMIDE [Concomitant]
  5. DIGOXIN [Concomitant]

REACTIONS (3)
  - DRUG INTERACTION [None]
  - HYPONATRAEMIA [None]
  - INAPPROPRIATE ANTIDIURETIC HORMONE SECRETION [None]
